FAERS Safety Report 25182363 (Version 1)
Quarter: 2025Q2

REPORT INFORMATION
  Report Type: Spontaneous
  Country: US (occurrence: US)
  Receive Date: 20250410
  Receipt Date: 20250410
  Transmission Date: 20250717
  Serious: No
  Sender: KINIKSA PHARMACEUTICALS
  Company Number: US-Kiniksa Pharmaceuticals Ltd.-2024KPU001631

PATIENT
  Age: 69 Year
  Sex: Female

DRUGS (2)
  1. ARCALYST [Suspect]
     Active Substance: RILONACEPT
     Indication: Pericarditis
     Dosage: (2ML)
     Route: 058
  2. ARCALYST [Suspect]
     Active Substance: RILONACEPT
     Route: 058
     Dates: start: 202409

REACTIONS (7)
  - Injection site pain [Unknown]
  - Off label use [Unknown]
  - Injection site urticaria [Unknown]
  - Injection site erythema [Recovering/Resolving]
  - Injection site pruritus [Recovering/Resolving]
  - Injection site pain [Unknown]
  - Injection site rash [Unknown]

NARRATIVE: CASE EVENT DATE: 20240901
